FAERS Safety Report 18708434 (Version 1)
Quarter: 2021Q1

REPORT INFORMATION
  Report Type: Spontaneous
  Country: FR (occurrence: FR)
  Receive Date: 20210106
  Receipt Date: 20210106
  Transmission Date: 20210419
  Serious: Yes (Hospitalization)
  Sender: FDA-Public Use
  Company Number: FR-TEVA-2020-FR-1865478

PATIENT
  Age: 76 Year
  Sex: Male
  Weight: 86 kg

DRUGS (16)
  1. ETOPOSIDE. [Suspect]
     Active Substance: ETOPOSIDE
     Indication: B-CELL LYMPHOMA
     Dosage: 81 MG D1 (D2D3 CANCELED), UNIT DOSE: 81 MG
     Route: 042
     Dates: start: 20201006, end: 20201006
  2. ENDOXAN [Suspect]
     Active Substance: CYCLOPHOSPHAMIDE
     Indication: B-CELL LYMPHOMA
     Dosage: 1220 MG D1 EACH TREATMENT, UNIT DOSE: 1220 MG
     Route: 042
     Dates: start: 20201006, end: 20201030
  3. MABTHERA [Suspect]
     Active Substance: RITUXIMAB
     Indication: B-CELL LYMPHOMA
     Dosage: 610 MG D1 EACH TREATMENT, UNIT DOSE: 610 MG
     Route: 042
     Dates: start: 20201006, end: 20201030
  4. PANTOPRAZOLE [Concomitant]
     Active Substance: PANTOPRAZOLE
     Indication: PEPTIC ULCER
     Dosage: 20 MG
     Route: 048
     Dates: start: 20201002
  5. SPECIAFOLDINE [Concomitant]
     Active Substance: FOLIC ACID
     Indication: ANAEMIA PROPHYLAXIS
     Dosage: 0.4 MG
     Route: 048
     Dates: start: 20201002
  6. POLARAMINE [Concomitant]
     Active Substance: DEXCHLORPHENIRAMINE MALEATE
     Indication: ALLERGY PROPHYLAXIS
     Dosage: 5 MG
     Route: 042
     Dates: start: 20201006, end: 20201030
  7. ZOPHREN [Concomitant]
     Active Substance: ONDANSETRON
     Indication: CHEMOTHERAPY SIDE EFFECT PROPHYLAXIS
     Dosage: 8 MG
     Route: 042
     Dates: start: 20201006, end: 20201030
  8. DOXORUBICINE [Suspect]
     Active Substance: DOXORUBICIN
     Indication: B-CELL LYMPHOMA
     Dosage: 81 MG D1 EACH TREATMENT, UNIT DOSE: 81MG
     Route: 042
     Dates: start: 20201030, end: 20201030
  9. ZARZIO [Suspect]
     Active Substance: FILGRASTIM
     Indication: NEUTROPENIA
     Dosage: 1 SER / DAY, UNIT DOSE: 1 DOSAGE FORMS
     Route: 058
     Dates: start: 20201011, end: 20201012
  10. OMEXEL L.P. 0,4 MG, COMPRIME PELLICULE A LIBERATION PROLONGEE [Concomitant]
     Active Substance: TAMSULOSIN HYDROCHLORIDE
     Indication: BENIGN PROSTATIC HYPERPLASIA
     Dosage: 0.4 MG, PROLONGED?RELEASE FILM?COATED TABLET
     Route: 048
     Dates: start: 20201002
  11. PREDNISOLONE. [Concomitant]
     Active Substance: PREDNISOLONE
     Indication: PAIN
     Dosage: 60 MILLIGRAM DAILY; THE MORNING
     Route: 048
     Dates: start: 20200929
  12. SOLU?MEDROL [Concomitant]
     Active Substance: METHYLPREDNISOLONE SODIUM SUCCINATE
     Indication: ALLERGY PROPHYLAXIS
     Dosage: 64.8 MG
     Route: 042
     Dates: start: 20201006, end: 20201030
  13. ZYMAD 80 000 UI, SOLUTION BUVABLE EN AMPOULE [Concomitant]
     Active Substance: CHOLECALCIFEROL
     Indication: HYPOVITAMINOSIS
     Dosage: 1 DOSAGE FORMS,  IN AMPOULE
     Route: 048
     Dates: start: 20201002
  14. VALACICLOVIR [Concomitant]
     Active Substance: VALACYCLOVIR HYDROCHLORIDE
     Indication: ANTIVIRAL TREATMENT
     Dosage: UNSPECIFIED, UNIT DOSE: 1000MG
     Route: 048
     Dates: start: 20201006
  15. PARACETAMOL B BRAUN [Concomitant]
     Active Substance: ACETAMINOPHEN
     Indication: PAIN
     Dosage: 1000 MG
     Route: 042
     Dates: start: 20201006, end: 20201030
  16. VINCRISTINE (SULFATE DE) [Suspect]
     Active Substance: VINCRISTINE SULFATE
     Indication: B-CELL LYMPHOMA
     Dosage: 2 MG D1 EACH TREATMENT, UNIT DOSE: 2MG
     Route: 042
     Dates: start: 20201006, end: 20201030

REACTIONS (1)
  - Interstitial lung disease [Not Recovered/Not Resolved]

NARRATIVE: CASE EVENT DATE: 20201121
